FAERS Safety Report 15903110 (Version 1)
Quarter: 2019Q1

REPORT INFORMATION
  Report Type: Spontaneous
  Country: DE (occurrence: DE)
  Receive Date: 20190202
  Receipt Date: 20190202
  Transmission Date: 20190417
  Serious: Yes (Hospitalization)
  Sender: FDA-Public Use
  Company Number: DE-B.I. PHARMACEUTICALS,INC./RIDGEFIELD-2019-BI-003822

PATIENT
  Age: 76 Year
  Sex: Male
  Weight: 62 kg

DRUGS (1)
  1. SPIOLTO RESPIMAT [Suspect]
     Active Substance: OLODATEROL HYDROCHLORIDE\TIOTROPIUM BROMIDE MONOHYDRATE
     Indication: CHRONIC OBSTRUCTIVE PULMONARY DISEASE
     Route: 055

REACTIONS (10)
  - Troponin T increased [Unknown]
  - Dyspnoea exertional [Unknown]
  - Angina pectoris [Unknown]
  - Nutritional condition abnormal [Unknown]
  - Right ventricular dilatation [Unknown]
  - General physical health deterioration [Unknown]
  - Tachycardia [Unknown]
  - Left ventricular dysfunction [Unknown]
  - Scar [Unknown]
  - Lung volume reduction surgery [Unknown]

NARRATIVE: CASE EVENT DATE: 201808
